FAERS Safety Report 8592417-9 (Version None)
Quarter: 2012Q3

REPORT INFORMATION
  Report Type: 
  Country: None (occurrence: None)
  Receive Date: 20120814
  Receipt Date: 20120802
  Transmission Date: 20120928
  Serious: Yes (Other)
  Sender: FDA-Public Use
  Company Number: JP-MERCK-1208JPN004335

PATIENT

DRUGS (2)
  1. BONOTEO [Suspect]
     Dosage: 50 MG, QM
     Route: 048
  2. FAMOTIDINE [Suspect]
     Dosage: 20 MG, BID
     Route: 048

REACTIONS (1)
  - HYPOTENSION [None]
